FAERS Safety Report 7316798-9 (Version None)
Quarter: 2011Q1

REPORT INFORMATION
  Report Type: 
  Country: None (occurrence: None)
  Receive Date: 20110226
  Receipt Date: 20100817
  Transmission Date: 20110831
  Serious: No
  Sender: FDA-Public Use
  Company Number: US-ALLERGAN-1010647US

PATIENT
  Age: 79 Year
  Sex: Female

DRUGS (1)
  1. BOTOXA? [Suspect]
     Indication: BLEPHAROSPASM
     Dosage: UNK
     Route: 030
     Dates: start: 20100729, end: 20100729

REACTIONS (7)
  - URTICARIA [None]
  - ERYTHEMA [None]
  - EYELID PAIN [None]
  - ORAL HERPES [None]
  - INJECTION SITE SWELLING [None]
  - VISION BLURRED [None]
  - VERTIGO [None]
